FAERS Safety Report 6141214-2 (Version None)
Quarter: 2009Q2

REPORT INFORMATION
  Report Type: 
  Country: None (occurrence: None)
  Receive Date: 20090402
  Receipt Date: 20090326
  Transmission Date: 20091009
  Serious: Yes (Death, Hospitalization)
  Sender: FDA-Public Use
  Company Number: CN-ABBOTT-09P-035-0562371-00

PATIENT
  Sex: Male
  Weight: 45 kg

DRUGS (1)
  1. KALETRA [Suspect]
     Indication: ACQUIRED IMMUNODEFICIENCY SYNDROME
     Dosage: 400/100 MG, 2 IN 1 D
     Dates: start: 20080716, end: 20090125

REACTIONS (3)
  - ABDOMINAL PAIN [None]
  - PNEUMONIA [None]
  - PULMONARY TUBERCULOSIS [None]
